FAERS Safety Report 9559600 (Version 1)
Quarter: 2013Q3

REPORT INFORMATION
  Report Type: Spontaneous
  Country: US (occurrence: None)
  Receive Date: 20130924
  Receipt Date: 20130924
  Transmission Date: 20140515
  Serious: No
  Sender: FDA-Public Use
  Company Number: 1878984

PATIENT
  Sex: Female

DRUGS (1)
  1. AMINOCAPROIC ACID [Suspect]
     Indication: HAEMORRHAGE
     Dates: start: 20130828

REACTIONS (1)
  - Hypotension [None]
